FAERS Safety Report 4550047-X (Version None)
Quarter: 2005Q1

REPORT INFORMATION
  Report Type: 
  Country: None (occurrence: None)
  Receive Date: 20050112
  Receipt Date: 20041207
  Transmission Date: 20050727
  Serious: Yes (Hospitalization, Other)
  Sender: FDA-Public Use
  Company Number: PHEH2004US13172

PATIENT
  Age: 73 Year
  Sex: Female

DRUGS (23)
  1. ZELNORM [Suspect]
     Indication: CONSTIPATION
     Dosage: 6 MG, BID
     Dates: start: 20030701, end: 20041001
  2. GLUCOTROL [Concomitant]
  3. GLUCOPHAGE [Concomitant]
  4. EFFEXOR [Concomitant]
  5. XANAX [Concomitant]
  6. MULTIVITAMIN [Concomitant]
  7. VITAMIN E [Concomitant]
  8. VITAMIN C [Concomitant]
  9. CALCIUM GLUCONATE [Concomitant]
  10. FIBERCON [Concomitant]
  11. ACIPHEX [Concomitant]
     Indication: GASTROOESOPHAGEAL REFLUX DISEASE
  12. OXYCONTIN [Concomitant]
  13. LANTUS [Concomitant]
  14. METHOTREXATE [Concomitant]
  15. FOLIC ACID [Concomitant]
  16. WELLBUTRIN [Concomitant]
  17. LASIX [Concomitant]
  18. POTASSIUM [Concomitant]
  19. REMICADE [Concomitant]
  20. HUMALOG [Concomitant]
  21. ALLEGRA [Concomitant]
  22. NAPROSYN [Concomitant]
  23. DIGOXIN [Concomitant]

REACTIONS (15)
  - ABDOMINAL DISTENSION [None]
  - ABDOMINAL PAIN LOWER [None]
  - COLECTOMY PARTIAL [None]
  - CULTURE POSITIVE [None]
  - HAEMATOCRIT DECREASED [None]
  - HAEMOGLOBIN DECREASED [None]
  - HYPOTENSION [None]
  - INTESTINAL FISTULA [None]
  - INTESTINAL PERFORATION [None]
  - ISCHAEMIC ULCER [None]
  - LARGE INTESTINE ANASTOMOSIS [None]
  - PERITONITIS [None]
  - SINUS TACHYCARDIA [None]
  - VOMITING [None]
  - WHITE BLOOD CELL COUNT INCREASED [None]
